FAERS Safety Report 5463131-3 (Version None)
Quarter: 2007Q3

REPORT INFORMATION
  Report Type: 
  Country: None (occurrence: None)
  Receive Date: 20070918
  Receipt Date: 20070918
  Transmission Date: 20080115
  Serious: No
  Sender: FDA-Public Use
  Company Number: None

PATIENT
  Age: 65 Year
  Sex: Female

DRUGS (1)
  1. DEMEROL [Suspect]
     Indication: ANALGESIA
     Dosage: 25 MG ONE TIME DOSE IV BOLUS
     Route: 040
     Dates: start: 20070911, end: 20070912

REACTIONS (2)
  - PRURITUS [None]
  - URTICARIA [None]
